FAERS Safety Report 8504077-3 (Version None)
Quarter: 2012Q3

REPORT INFORMATION
  Report Type: 
  Country: None (occurrence: None)
  Receive Date: 20120711
  Receipt Date: 20110212
  Transmission Date: 20120928
  Serious: Yes (Hospitalization, Other)
  Sender: FDA-Public Use
  Company Number: DE-009507513-1111DEU00084

PATIENT

DRUGS (10)
  1. JANUMET [Suspect]
     Indication: TYPE 2 DIABETES MELLITUS
     Dosage: 1000MG/50
     Route: 048
     Dates: start: 20110101
  2. METFORMIN HCL [Suspect]
     Indication: TYPE 2 DIABETES MELLITUS
     Dosage: 1000MG/50
     Route: 048
     Dates: start: 20110202, end: 20110101
  3. METOPROLOL TARTRATE [Concomitant]
     Dosage: 50 MG, QD
     Route: 048
  4. RAMIPRIL [Concomitant]
     Dosage: 5 MG, BID
     Route: 048
  5. FURORESE TABLETS [Concomitant]
     Dosage: 40 MG, QD
     Route: 048
  6. PANTOPRAZOLE [Concomitant]
     Dosage: 20 MG, QD
     Route: 048
  7. AMILORIDE HCL AND HYDROCHLOROTHIAZIDE [Suspect]
     Route: 048
  8. ASPIRIN [Concomitant]
     Dosage: 100 MG, QD
     Route: 048
  9. AMLODIPINE [Concomitant]
     Dosage: 5 MG, QD
     Route: 048
  10. DOXAZOSIN MESYLATE [Concomitant]
     Dosage: 4 MG, QD
     Route: 048

REACTIONS (13)
  - HYPONATRAEMIA [None]
  - DYSPNOEA [None]
  - HEADACHE [None]
  - PYREXIA [None]
  - STASIS DERMATITIS [None]
  - OEDEMA PERIPHERAL [None]
  - GASTROOESOPHAGEAL REFLUX DISEASE [None]
  - JOINT SWELLING [None]
  - DIABETIC NEPHROPATHY [None]
  - WEIGHT INCREASED [None]
  - HYPERTENSIVE CRISIS [None]
  - MELANOCYTIC NAEVUS [None]
  - THROMBOCYTOSIS [None]
